FAERS Safety Report 5387609-6 (Version None)
Quarter: 2007Q3

REPORT INFORMATION
  Report Type: 
  Country: None (occurrence: None)
  Receive Date: 20070711
  Receipt Date: 20070711
  Transmission Date: 20080115
  Serious: Yes (Life-Threatening)
  Sender: FDA-Public Use
  Company Number: None

PATIENT
  Age: 34 Year
  Sex: Male
  Weight: 90 kg

DRUGS (4)
  1. LIDOCAINE [Suspect]
     Indication: ANAESTHESIA
     Dosage: 20 CC SPRAY TOP JELLY / 20 CC ONCE NASAL
     Route: 045
  2. LIDOCAINE [Suspect]
     Indication: DIAGNOSTIC PROCEDURE
     Dosage: 20 CC SPRAY TOP JELLY / 20 CC ONCE NASAL
     Route: 045
  3. LIDOCAINE [Suspect]
     Indication: ANAESTHESIA
     Dosage: 20 CC LAVAGE ONCE ENDOTRACHEAL
     Route: 007
  4. LIDOCAINE [Suspect]
     Indication: DIAGNOSTIC PROCEDURE
     Dosage: 20 CC LAVAGE ONCE ENDOTRACHEAL
     Route: 007

REACTIONS (5)
  - AGITATION [None]
  - APNOEA [None]
  - DRUG TOXICITY [None]
  - POST PROCEDURAL COMPLICATION [None]
  - STRIDOR [None]
